FAERS Safety Report 6830628-0 (Version None)
Quarter: 2010Q3

REPORT INFORMATION
  Report Type: 
  Country: None (occurrence: None)
  Receive Date: 20100712
  Receipt Date: 20100705
  Transmission Date: 20110219
  Serious: Yes (Other)
  Sender: FDA-Public Use
  Company Number: IT-KINGPHARMUSA00001-K201000840

PATIENT
  Age: 26 Year
  Sex: Female
  Weight: 48 kg

DRUGS (4)
  1. LEVOXYL [Suspect]
     Indication: HYPOTHYROIDISM
     Dosage: 25 MCG, QD
     Dates: start: 20040101, end: 20080201
  2. GENOTROPIN [Suspect]
     Indication: GROWTH HORMONE DEFICIENCY
     Dosage: 0.8 MG, QD
     Route: 058
     Dates: start: 20040101, end: 20060601
  3. FEDRA [Suspect]
     Indication: HYPOGONADISM
     Dosage: 25 MCG/75 MCG, 21 DAYS/MONTH
     Dates: start: 20040101, end: 20080201
  4. FEDRA [Suspect]
     Dosage: 25 MCG/75 MCG, 21 DAYS/MONTH
     Dates: start: 20080601

REACTIONS (1)
  - SUPERFICIAL SPREADING MELANOMA STAGE UNSPECIFIED [None]
